FAERS Safety Report 4354296-5 (Version None)
Quarter: 2004Q2

REPORT INFORMATION
  Report Type: 
  Country: None (occurrence: None)
  Receive Date: 20040503
  Receipt Date: 20030714
  Transmission Date: 20050107
  Serious: Yes (Other)
  Sender: FDA-Public Use
  Company Number: PHEH2003US05229

PATIENT
  Age: 62 Year
  Sex: Male
  Weight: 126.5 kg

DRUGS (4)
  1. DIOVAN HCT [Suspect]
     Indication: HYPERTENSION
     Dosage: 1 TABLET TWICE DAILY, ORAL
     Route: 048
     Dates: start: 20030605
  2. ACCUPRIL [Concomitant]
  3. ASPIRIN [Concomitant]
  4. MINOCYCLINE HCL [Concomitant]

REACTIONS (3)
  - ANGIONEUROTIC OEDEMA [None]
  - PHARYNGEAL OEDEMA [None]
  - SWELLING FACE [None]
